FAERS Safety Report 14917286 (Version 1)
Quarter: 2018Q2

REPORT INFORMATION
  Report Type: Spontaneous
  Country: KW (occurrence: KW)
  Receive Date: 20180521
  Receipt Date: 20180521
  Transmission Date: 20180711
  Serious: Yes (Death, Hospitalization)
  Sender: FDA-Public Use
  Company Number: KW-ALVOGEN-2018-ALVOGEN-096186

PATIENT
  Age: 82 Year
  Sex: Female

DRUGS (7)
  1. PENICILLIN G POTASIUM [Suspect]
     Active Substance: PENICILLIN G POTASSIUM
     Indication: STREPTOCOCCAL SEPSIS
     Dosage: 4 MILLION IU
     Route: 042
  2. NOREPINEPHRINE BITARTRATE. [Concomitant]
     Active Substance: NOREPINEPHRINE BITARTRATE
     Indication: PRODUCT USED FOR UNKNOWN INDICATION
  3. DOPAMINE [Concomitant]
     Active Substance: DOPAMINE\DOPAMINE HYDROCHLORIDE
     Indication: PRODUCT USED FOR UNKNOWN INDICATION
  4. MEROPENEM. [Concomitant]
     Active Substance: MEROPENEM
     Indication: PRODUCT USED FOR UNKNOWN INDICATION
     Route: 042
  5. PENICILLIN G POTASIUM [Suspect]
     Active Substance: PENICILLIN G POTASSIUM
     Indication: STREPTOCOCCAL SEPSIS
     Dosage: 2 MILLION IU
     Route: 042
  6. LINEZOLID. [Concomitant]
     Active Substance: LINEZOLID
     Indication: PRODUCT USED FOR UNKNOWN INDICATION
     Route: 042
  7. CLINDAMYCIN. [Suspect]
     Active Substance: CLINDAMYCIN
     Indication: STREPTOCOCCAL SEPSIS
     Route: 042

REACTIONS (2)
  - Drug ineffective [Fatal]
  - Drug resistance [Fatal]
